FAERS Safety Report 5062820-2 (Version None)
Quarter: 2006Q3

REPORT INFORMATION
  Report Type: 
  Country: None (occurrence: None)
  Receive Date: 20060724
  Receipt Date: 20060724
  Transmission Date: 20061208
  Serious: Yes (Hospitalization)
  Sender: FDA-Public Use
  Company Number: None

PATIENT
  Sex: Male
  Weight: 88.4514 kg

DRUGS (1)
  1. INTERFERON ALPHA 2A [Suspect]
     Indication: HEPATITIS C

REACTIONS (5)
  - BODY TEMPERATURE INCREASED [None]
  - CELLULITIS [None]
  - DERMATITIS EXFOLIATIVE [None]
  - ECZEMA [None]
  - EXFOLIATIVE RASH [None]
